FAERS Safety Report 13537592 (Version 1)
Quarter: 2017Q2

REPORT INFORMATION
  Report Type: Spontaneous
  Country: GB (occurrence: GB)
  Receive Date: 20170511
  Receipt Date: 20170511
  Transmission Date: 20170830
  Serious: Yes (Other)
  Sender: FDA-Public Use
  Company Number: PHFR2017GB003160

PATIENT
  Age: 35 Year
  Sex: Male

DRUGS (1)
  1. PHENOXYMETHYLPENICILLIN [Suspect]
     Active Substance: PENICILLIN V
     Indication: TONSILLITIS
     Dosage: 250 MG, TID
     Route: 048
     Dates: start: 20170413, end: 20170414

REACTIONS (2)
  - Skin mass [Recovered/Resolved]
  - Drug eruption [Unknown]

NARRATIVE: CASE EVENT DATE: 20170413
